FAERS Safety Report 23461063 (Version 1)
Quarter: 2024Q1

REPORT INFORMATION
  Report Type: Spontaneous
  Country: CN (occurrence: CN)
  Receive Date: 20240131
  Receipt Date: 20240131
  Transmission Date: 20240409
  Serious: Yes (Other)
  Sender: FDA-Public Use
  Company Number: CN-PFIZER INC-PV202400011745

PATIENT
  Age: 62 Year
  Sex: Male
  Weight: 80 kg

DRUGS (3)
  1. EPIRUBICIN HYDROCHLORIDE [Suspect]
     Active Substance: EPIRUBICIN HYDROCHLORIDE
     Indication: Hepatic cancer
     Dosage: 40 MG, 1X/DAY
     Dates: start: 20240108, end: 20240108
  2. CARBOPLATIN [Suspect]
     Active Substance: CARBOPLATIN
     Indication: Hepatic cancer
     Dosage: 150 MG, 1X/DAY
     Dates: start: 20240108, end: 20240108
  3. SODIUM CHLORIDE [Suspect]
     Active Substance: SODIUM CHLORIDE
     Indication: Vehicle solution use
     Dosage: 50 ML, 1X/DAY
     Dates: start: 20240108, end: 20240108

REACTIONS (3)
  - Hepatocellular injury [Unknown]
  - White blood cell count decreased [Unknown]
  - Platelet count decreased [Unknown]

NARRATIVE: CASE EVENT DATE: 20240111
